FAERS Safety Report 25217425 (Version 4)
Quarter: 2025Q3

REPORT INFORMATION
  Report Type: Report from Study
  Country: US (occurrence: US)
  Receive Date: 20250420
  Receipt Date: 20250828
  Transmission Date: 20251020
  Serious: No
  Sender: SANDOZ
  Company Number: US-SANDOZ-SDZ2025US024350

PATIENT
  Sex: Male

DRUGS (2)
  1. OMNITROPE [Suspect]
     Active Substance: SOMATROPIN
     Indication: Hypopituitarism
     Dosage: 0.28 ML, QD, 5 MG/ML
     Route: 058
     Dates: start: 20250311, end: 20250417
  2. OMNITROPE [Suspect]
     Active Substance: SOMATROPIN
     Indication: Hypopituitarism
     Dosage: 0.28 ML, QD, 5 MG/ML
     Route: 058
     Dates: start: 20250311, end: 20250417

REACTIONS (5)
  - Injection site bruising [Not Recovered/Not Resolved]
  - Product packaging quantity issue [Unknown]
  - Wrong technique in product usage process [Unknown]
  - Product preparation issue [Unknown]
  - Device use error [Unknown]

NARRATIVE: CASE EVENT DATE: 20250101
